FAERS Safety Report 7090356-6 (Version None)
Quarter: 2010Q4

REPORT INFORMATION
  Report Type: 
  Country: None (occurrence: None)
  Receive Date: 20101012
  Receipt Date: 20100826
  Transmission Date: 20110411
  Serious: No
  Sender: FDA-Public Use
  Company Number: US-001275

PATIENT
  Sex: Female

DRUGS (1)
  1. KUVAN [Suspect]
     Indication: PHENYLKETONURIA
     Dosage: (20 MG/KG QD ORAL)
     Route: 048
     Dates: start: 20100101, end: 20100301

REACTIONS (1)
  - FLATULENCE [None]
